FAERS Safety Report 22343887 (Version 1)
Quarter: 2023Q2

REPORT INFORMATION
  Report Type: Spontaneous
  Country: US (occurrence: None)
  Receive Date: 20230518
  Receipt Date: 20230518
  Transmission Date: 20230721
  Serious: No
  Sender: FDA-Public Use
  Company Number: None

PATIENT
  Age: 35 Year
  Sex: Female

DRUGS (1)
  1. DEXTROAMPHET SACCHARAT, AMPHET ASPARTATE, DEXTROAMPHET SULFATE AND AMP [Suspect]
     Active Substance: AMPHETAMINE ASPARTATE\AMPHETAMINE ASPARTATE MONOHYDRATE\AMPHETAMINE SULFATE\DEXTROAMPHETAMINE SACCHA
     Indication: Attention deficit hyperactivity disorder
     Dosage: 1 TABLET 3 TIMES A DAY ORAL
     Route: 048
     Dates: start: 20150101

REACTIONS (8)
  - Anxiety [None]
  - Depression [None]
  - Nausea [None]
  - Migraine [None]
  - Insomnia [None]
  - Palpitations [None]
  - Crying [None]
  - Product formulation issue [None]

NARRATIVE: CASE EVENT DATE: 20221001
